FAERS Safety Report 5402458-8 (Version None)
Quarter: 2007Q3

REPORT INFORMATION
  Report Type: 
  Country: None (occurrence: None)
  Receive Date: 20070730
  Receipt Date: 20070730
  Transmission Date: 20080115
  Serious: Yes (Death)
  Sender: FDA-Public Use
  Company Number: None

PATIENT
  Age: 52 Year
  Sex: Male
  Weight: 113.3993 kg

DRUGS (1)
  1. AVANDIA [Suspect]
     Indication: TYPE 2 DIABETES MELLITUS
     Dosage: 8MG 1 DAILY
     Dates: start: 20021221, end: 20041027

REACTIONS (3)
  - CARDIAC FAILURE [None]
  - PERICARDIAL EFFUSION [None]
  - SUDDEN DEATH [None]
